FAERS Safety Report 21832254 (Version 1)
Quarter: 2023Q1

REPORT INFORMATION
  Report Type: Spontaneous
  Country: NL (occurrence: NL)
  Receive Date: 20230106
  Receipt Date: 20230106
  Transmission Date: 20230418
  Serious: Yes (Hospitalization, Other)
  Sender: FDA-Public Use
  Company Number: NL-CELGENE-NLD-20210704186

PATIENT
  Age: 69 Year
  Sex: Female

DRUGS (31)
  1. LENALIDOMIDE [Suspect]
     Active Substance: LENALIDOMIDE
     Indication: Plasma cell myeloma
     Dosage: 10 MILLIGRAM, FREQUENCY TEXT: NOT PROVIDED
     Route: 048
     Dates: start: 20210610, end: 20210714
  2. ZOLEDRONIC ACID [Suspect]
     Active Substance: ZOLEDRONIC ACID
     Indication: Plasma cell myeloma
     Dosage: UNK, FREQUENCY TEXT: NOT PROVIDED
     Route: 065
     Dates: start: 20220502, end: 20220502
  3. ZOLEDRONIC ACID [Suspect]
     Active Substance: ZOLEDRONIC ACID
     Indication: Prophylaxis
     Dosage: UNK, FREQUENCY TEXT: NOT PROVIDED
     Route: 065
     Dates: start: 20211007, end: 20211007
  4. ZOLEDRONIC ACID [Suspect]
     Active Substance: ZOLEDRONIC ACID
     Dosage: UNK, FREQUENCY TEXT: NOT PROVIDED
     Route: 065
     Dates: start: 20210714, end: 20210714
  5. ZOLEDRONIC ACID [Suspect]
     Active Substance: ZOLEDRONIC ACID
     Dosage: UNK, FREQUENCY TEXT: NOT PROVIDED
     Route: 065
     Dates: start: 20220711, end: 20220711
  6. CARFILZOMIB [Suspect]
     Active Substance: CARFILZOMIB
     Indication: Plasma cell myeloma
     Dosage: 37 MILLIGRAM (FREQUENCY TEXT: NOT PROVIDED)
     Route: 042
     Dates: start: 20210610, end: 20210707
  7. DEXAMETHASONE [Suspect]
     Active Substance: DEXAMETHASONE
     Indication: Plasma cell myeloma
     Dosage: 40 MILLIGRAM(FREQUENCY TEXT: NOT PROVIDED)
     Route: 048
     Dates: start: 20210610, end: 20210707
  8. DEXAMETHASONE [Suspect]
     Active Substance: DEXAMETHASONE
     Dosage: UNK
     Route: 065
     Dates: start: 20211204, end: 20211205
  9. DEXAMETHASONE [Suspect]
     Active Substance: DEXAMETHASONE
     Dosage: UNK
     Route: 065
     Dates: start: 20210707
  10. ISATUXIMAB [Suspect]
     Active Substance: ISATUXIMAB
     Indication: Plasma cell myeloma
     Dosage: 665 MILLIGRAM,FREQUENCY TEXT: NOT PROVIDED
     Route: 042
     Dates: start: 20210610, end: 20210707
  11. CALCIUM CARBONATE [Concomitant]
     Active Substance: CALCIUM CARBONATE
     Indication: Prophylaxis
     Dosage: UNK, FREQUENCY TEXT: NOT PROVIDED
     Route: 065
     Dates: start: 20210525, end: 20211221
  12. OMEPRAZOLE [Concomitant]
     Active Substance: OMEPRAZOLE
     Indication: Prophylaxis
     Dosage: UNK, FREQUENCY TEXT: NOT PROVIDED
     Route: 065
     Dates: start: 20210616, end: 20211202
  13. NADROPARIN [Concomitant]
     Active Substance: NADROPARIN
     Indication: Thrombosis prophylaxis
     Dosage: UNK, FREQUENCY TEXT: NOT PROVIDED
     Route: 065
     Dates: start: 20210714
  14. PEGFILGRASTIM [Concomitant]
     Active Substance: PEGFILGRASTIM
     Indication: Plasma cell myeloma
     Dosage: UNK, FREQUENCY TEXT: NOT PROVIDED
     Route: 065
     Dates: start: 20210607, end: 20210607
  15. NITROGLYCERIN [Concomitant]
     Active Substance: NITROGLYCERIN
     Indication: Tumour lysis syndrome
     Dosage: UNK, FREQUENCY TEXT: NOT PROVIDED
     Route: 065
     Dates: start: 20210610, end: 20210610
  16. NADROPARIN CALCIUM [Concomitant]
     Active Substance: NADROPARIN CALCIUM
     Indication: Prophylaxis
     Dosage: UNK, FREQUENCY TEXT: NOT PROVIDED
     Route: 065
     Dates: start: 20210610, end: 20211110
  17. COTRIMOXAZOLE [Concomitant]
     Active Substance: SULFAMETHOXAZOLE\TRIMETHOPRIM
     Indication: Antifungal prophylaxis
     Dosage: UNK, FREQUENCY TEXT: NOT PROVIDED
     Route: 065
     Dates: start: 20210610, end: 20210714
  18. COTRIMOXAZOLE [Concomitant]
     Active Substance: SULFAMETHOXAZOLE\TRIMETHOPRIM
     Dosage: UNK, FREQUENCY TEXT: NOT PROVIDED
     Route: 065
     Dates: start: 20210716, end: 20211110
  19. CHOLECALCIFEROL [Concomitant]
     Active Substance: CHOLECALCIFEROL
     Indication: Prophylaxis
     Dosage: UNK,FREQUENCY TEXT: NOT PROVIDED
     Route: 065
     Dates: start: 20210525, end: 20211221
  20. CHOLECALCIFEROL [Concomitant]
     Active Substance: CHOLECALCIFEROL
     Indication: Vitamin supplementation
  21. CHOLECALCIFEROL [Concomitant]
     Active Substance: CHOLECALCIFEROL
     Indication: Plasma cell myeloma
  22. METOCLOPRAMIDE [Concomitant]
     Active Substance: METOCLOPRAMIDE
     Indication: Prophylaxis
     Dosage: UNK, FREQUENCY TEXT: NOT PROVIDED
     Route: 065
     Dates: start: 20210613, end: 20211202
  23. METOCLOPRAMIDE [Concomitant]
     Active Substance: METOCLOPRAMIDE
     Indication: Nausea
  24. ALLOPURINOL [Concomitant]
     Active Substance: ALLOPURINOL
     Indication: Prophylaxis
     Dosage: UNK, FREQUENCY TEXT: NOT PROVIDED
     Route: 065
     Dates: start: 20210610, end: 20210618
  25. LORAZEPAM [Concomitant]
     Active Substance: LORAZEPAM
     Indication: Prophylaxis
     Dosage: UNK, FREQUENCY TEXT: NOT PROVIDED
     Route: 065
     Dates: start: 20210613, end: 20210614
  26. VALACYCLOVIR HYDROCHLORIDE [Concomitant]
     Active Substance: VALACYCLOVIR HYDROCHLORIDE
     Indication: Prophylaxis
     Dosage: UNK, FREQUENCY TEXT: NOT PROVIDED
     Route: 065
     Dates: start: 20210716, end: 20211110
  27. VALACYCLOVIR HYDROCHLORIDE [Concomitant]
     Active Substance: VALACYCLOVIR HYDROCHLORIDE
     Dosage: UNK,FREQUENCY TEXT: NOT PROVIDED
     Route: 065
     Dates: start: 20210610, end: 20210714
  28. VALACYCLOVIR HYDROCHLORIDE [Concomitant]
     Active Substance: VALACYCLOVIR HYDROCHLORIDE
     Dosage: UNK, FREQUENCY TEXT: NOT PROVIDED
     Route: 065
     Dates: start: 20210610, end: 20210714
  29. VALACYCLOVIR HYDROCHLORIDE [Concomitant]
     Active Substance: VALACYCLOVIR HYDROCHLORIDE
     Dosage: UNK, FREQUENCY TEXT: NOT PROVIDED
     Route: 065
     Dates: start: 20210610, end: 20210714
  30. CIPROFLOXACIN [Concomitant]
     Active Substance: CIPROFLOXACIN
     Indication: Antibiotic prophylaxis
     Dosage: UNK,FREQUENCY TEXT: NOT PROVIDED
     Route: 065
     Dates: start: 20210716, end: 20211110
  31. CIPROFLOXACIN [Concomitant]
     Active Substance: CIPROFLOXACIN
     Dosage: UNK, FREQUENCY TEXT: NOT PROVIDED
     Route: 065
     Dates: start: 20210610, end: 20210714

REACTIONS (3)
  - Infusion related reaction [Recovered/Resolved]
  - Tumour lysis syndrome [Unknown]
  - Conjunctivitis viral [Recovered/Resolved]

NARRATIVE: CASE EVENT DATE: 20210611
